FAERS Safety Report 23380644 (Version 1)
Quarter: 2024Q1

REPORT INFORMATION
  Report Type: Spontaneous
  Country: US (occurrence: US)
  Receive Date: 20240109
  Receipt Date: 20240109
  Transmission Date: 20240410
  Serious: No
  Sender: FDA-Public Use
  Company Number: US-OPELLA-2023OHG019673

PATIENT

DRUGS (1)
  1. GOLD BOND MEDICATED ECZEMA RELIEF [Suspect]
     Active Substance: OATMEAL
     Route: 065

REACTIONS (3)
  - Product odour abnormal [Unknown]
  - Medication error [Unknown]
  - No adverse event [Unknown]
